FAERS Safety Report 19304703 (Version 3)
Quarter: 2021Q3

REPORT INFORMATION
  Report Type: Spontaneous
  Country: JP (occurrence: JP)
  Receive Date: 20210525
  Receipt Date: 20210907
  Transmission Date: 20211014
  Serious: Yes (Death, Other)
  Sender: FDA-Public Use
  Company Number: JP-JAZZ-2021-JP-009104

PATIENT
  Age: 74 Year
  Sex: Male
  Weight: 58 kg

DRUGS (1)
  1. DEFITELIO [Suspect]
     Active Substance: DEFIBROTIDE SODIUM
     Indication: VENOOCCLUSIVE LIVER DISEASE
     Dosage: 25 MILLIGRAM/KILOGRAM, QD
     Route: 042
     Dates: start: 20210511, end: 20210514

REACTIONS (3)
  - Septic shock [Fatal]
  - Off label use [Unknown]
  - Venoocclusive liver disease [Fatal]

NARRATIVE: CASE EVENT DATE: 20210511
